FAERS Safety Report 4268599-6 (Version None)
Quarter: 2004Q1

REPORT INFORMATION
  Report Type: 
  Country: None (occurrence: None)
  Receive Date: 20040112
  Receipt Date: 20040102
  Transmission Date: 20041129
  Serious: Yes (Other)
  Sender: FDA-Public Use
  Company Number: DK-GLAXOSMITHKLINE-B0318928A

PATIENT
  Sex: Male

DRUGS (1)
  1. ZYBAN [Suspect]
     Indication: SMOKER
     Dosage: 150MG PER DAY
     Route: 048

REACTIONS (3)
  - DEPRESSION [None]
  - IRRITABILITY [None]
  - RESPIRATORY DISTRESS [None]
